FAERS Safety Report 8141325-6 (Version None)
Quarter: 2012Q1

REPORT INFORMATION
  Report Type: 
  Country: None (occurrence: None)
  Receive Date: 20120216
  Receipt Date: 20120203
  Transmission Date: 20120608
  Serious: Yes (Other)
  Sender: FDA-Public Use
  Company Number: US-ROCHE-790628

PATIENT
  Sex: Male

DRUGS (1)
  1. AVASTIN [Suspect]
     Indication: GLAUCOMA
     Dosage: DOSE : 0.05 ML , FREQUENCY : X 1
     Route: 050
     Dates: start: 20110706, end: 20110706

REACTIONS (4)
  - PRODUCT QUALITY ISSUE [None]
  - BLINDNESS UNILATERAL [None]
  - STREPTOCOCCUS TEST POSITIVE [None]
  - ENDOPHTHALMITIS [None]
